FAERS Safety Report 7944921-1 (Version None)
Quarter: 2011Q4

REPORT INFORMATION
  Report Type: 
  Country: None (occurrence: None)
  Receive Date: 20111129
  Receipt Date: 20111122
  Transmission Date: 20120403
  Serious: Yes (Other)
  Sender: FDA-Public Use
  Company Number: PHHY2011CA102459

PATIENT
  Sex: Female

DRUGS (7)
  1. ZOLEDRONOC ACID [Suspect]
     Dosage: 5 MG, YEARLY
     Route: 042
     Dates: start: 20111121
  2. EZETIMIBE [Concomitant]
     Dosage: 1 MG, DAILY
  3. ATACAND [Concomitant]
     Dosage: 16 MG, DAILY
  4. ZOLEDRONOC ACID [Suspect]
     Indication: OSTEOPOROSIS
     Dosage: 5 MG, YEARLY
     Route: 042
     Dates: start: 20101119
  5. LIPITOR [Concomitant]
     Dosage: 80 MG, DAILY
  6. NORVASC [Concomitant]
     Dosage: 1.5 MG/ DAILY
  7. HYDROCHLOROTHIAZIDE [Concomitant]
     Dosage: 25 MG, DAILY

REACTIONS (2)
  - FALL [None]
  - WRIST FRACTURE [None]
